FAERS Safety Report 15202867 (Version 4)
Quarter: 2018Q3

REPORT INFORMATION
  Report Type: Spontaneous
  Country: JP (occurrence: JP)
  Receive Date: 20180726
  Receipt Date: 20180809
  Transmission Date: 20181010
  Serious: Yes (Other)
  Sender: FDA-Public Use
  Company Number: PHJP2018JP014287

PATIENT
  Age: 46 Year
  Sex: Female

DRUGS (5)
  1. REVOLADE TAB [Suspect]
     Active Substance: ELTROMBOPAG
     Indication: APLASTIC ANAEMIA
     Dosage: 25 MG, UNK
     Route: 048
     Dates: start: 201709, end: 201801
  2. REVOLADE TAB [Suspect]
     Active Substance: ELTROMBOPAG
     Dosage: 100 MG, UNK
     Route: 048
     Dates: start: 201801, end: 201804
  3. REVOLADE TAB [Suspect]
     Active Substance: ELTROMBOPAG
     Dosage: UNK
     Route: 048
     Dates: start: 201804, end: 201806
  4. METENOLONE ACETATE [Concomitant]
     Active Substance: METHENOLONE ACETATE
     Indication: PRODUCT USED FOR UNKNOWN INDICATION
     Dosage: UNK
     Route: 065
  5. NEORAL [Suspect]
     Active Substance: CYCLOSPORINE
     Indication: APLASTIC ANAEMIA
     Dosage: UNK
     Route: 048

REACTIONS (10)
  - Product use in unapproved indication [Unknown]
  - Ureterolithiasis [Unknown]
  - Drug ineffective [Unknown]
  - Myalgia [Recovered/Resolved]
  - Diabetes mellitus [Unknown]
  - Disease progression [Unknown]
  - Retinal haemorrhage [Unknown]
  - Aplastic anaemia [Unknown]
  - Platelet count decreased [Unknown]
  - Pancytopenia [Unknown]

NARRATIVE: CASE EVENT DATE: 201801
